FAERS Safety Report 9947997 (Version 2)
Quarter: 2014Q1

REPORT INFORMATION
  Report Type: Report from Study
  Country: US (occurrence: US)
  Receive Date: 20140303
  Receipt Date: 20140303
  Transmission Date: 20141002
  Serious: Yes (Other)
  Sender: FDA-Public Use
  Company Number: US-ABBVIE-13P-163-1050825-00

PATIENT
  Age: 71 Year
  Sex: Male

DRUGS (8)
  1. HUMIRA PEN [Suspect]
     Indication: CROHN^S DISEASE
     Dates: start: 201107, end: 201110
  2. HUMIRA PEN [Suspect]
     Dosage: LOADING DOSE
     Dates: start: 20130312
  3. PENTASA [Concomitant]
     Indication: CROHN^S DISEASE
  4. ENTOCORT [Concomitant]
     Indication: CROHN^S DISEASE
     Dosage: 9 MG DAILY
  5. CRESTOR [Concomitant]
     Indication: BLOOD CHOLESTEROL INCREASED
     Dosage: 20 MG DAILY
  6. COREG [Concomitant]
     Indication: CARDIAC DISORDER
  7. CELEXA [Concomitant]
     Indication: DEPRESSION
     Dosage: 2.4 MG DAILY
  8. XANAX [Concomitant]
     Indication: INSOMNIA
     Dosage: AT HOUR OF SLEEP AS NEEDED

REACTIONS (3)
  - Vascular shunt [Recovered/Resolved]
  - Prostatic operation [Recovered/Resolved]
  - Transurethral prostatectomy [Recovered/Resolved]
